FAERS Safety Report 7124438-7 (Version None)
Quarter: 2010Q4

REPORT INFORMATION
  Report Type: 
  Country: None (occurrence: None)
  Receive Date: 20101126
  Receipt Date: 20101108
  Transmission Date: 20110411
  Serious: Yes (Hospitalization)
  Sender: FDA-Public Use
  Company Number: PHHY2010CA76411

PATIENT
  Sex: Female

DRUGS (6)
  1. ACLASTA [Suspect]
     Indication: OSTEOPOROSIS
     Dosage: UNK
     Route: 042
     Dates: start: 20091208
  2. HYDROCHLOROTHIAZIDE [Concomitant]
  3. CIPRALEX [Concomitant]
  4. VITAMIN D [Concomitant]
  5. ASCORBIC ACID [Concomitant]
  6. CLONAZEPAM [Concomitant]

REACTIONS (2)
  - EAR OPERATION [None]
  - WOUND INFECTION [None]
